FAERS Safety Report 9241374 (Version 1)
Quarter: 2013Q1

REPORT INFORMATION
  Report Type: Spontaneous
  Country: US (occurrence: None)
  Receive Date: 20121120
  Receipt Date: 20121120
  Transmission Date: 20140127
  Serious: No
  Sender: FDA-Public Use
  Company Number: 1000038212

PATIENT
  Age: 39 Year
  Sex: Female

DRUGS (4)
  1. VIIBRYD [Suspect]
     Indication: DEPRESSION
     Dosage: 10 MG ( 10 MG, 1 IN 1 D), ORAL
     Route: 048
     Dates: start: 201108, end: 2011
  2. VIIBRYD [Suspect]
     Indication: DEPRESSION
     Dosage: 40 MG (40NGM 1 IN 1 D), ORAL
     Route: 048
     Dates: start: 2011, end: 201207
  3. WELLBUTRIN (BUPROPION HYDROCHLORIDE) (BUPROPION HYDROCHLORIDE) [Concomitant]
  4. XANAX (ALPRAZOLAM) (ALPRAZOLAM) [Concomitant]
     Route: 048

REACTIONS (6)
  - Libido decreased [None]
  - Paraesthesia [None]
  - Hallucination [None]
  - Nightmare [None]
  - Sleep paralysis [None]
  - Back pain [None]
